FAERS Safety Report 5304588-8 (Version None)
Quarter: 2007Q2

REPORT INFORMATION
  Report Type: 
  Country: None (occurrence: None)
  Receive Date: 20070423
  Receipt Date: 20070413
  Transmission Date: 20071010
  Serious: Yes (Other)
  Sender: FDA-Public Use
  Company Number: NL-GLAXOSMITHKLINE-B0435397A

PATIENT
  Age: 77 Year
  Sex: Female
  Weight: 69 kg

DRUGS (17)
  1. ROSIGLITAZONE MALEATE [Suspect]
     Dosage: 4MG TWICE PER DAY
     Dates: start: 20050601, end: 20060629
  2. OMEPRAZOLE [Suspect]
     Dosage: 20MG PER DAY
     Route: 065
     Dates: end: 20061101
  3. LETROZOLE [Concomitant]
     Dosage: 2.5MG PER DAY
     Route: 065
  4. FUROSEMIDE [Concomitant]
     Dosage: 40MG TWICE PER DAY
     Route: 065
     Dates: start: 20060612
  5. METFORMIN HCL [Concomitant]
     Dosage: 850MG TWICE PER DAY
     Route: 065
  6. PASSIFLORA [Concomitant]
     Route: 065
  7. UNKNOWN [Concomitant]
     Dosage: 2DROP THREE TIMES PER DAY
     Route: 065
  8. UNKNOWN [Concomitant]
     Route: 065
  9. VENOPLANT [Concomitant]
     Route: 065
  10. DOVONEX [Concomitant]
  11. UNKNOWN DRUG [Concomitant]
     Route: 065
  12. GLIBENCLAMIDE [Concomitant]
     Route: 065
  13. LACTASE [Concomitant]
     Route: 065
  14. DIDROKIT [Concomitant]
     Route: 065
  15. FEMARA [Concomitant]
     Route: 065
  16. TOPICORTE [Concomitant]
     Route: 065
  17. DOVONEX [Concomitant]
     Route: 065

REACTIONS (7)
  - ANAEMIA [None]
  - CONSTIPATION [None]
  - DIZZINESS [None]
  - LEUKOPENIA [None]
  - OEDEMA [None]
  - PANCYTOPENIA [None]
  - THROMBOCYTOPENIA [None]
